FAERS Safety Report 10058129 (Version 1)
Quarter: 2014Q2

REPORT INFORMATION
  Report Type: Spontaneous
  Country: US (occurrence: None)
  Receive Date: 20140403
  Receipt Date: 20140403
  Transmission Date: 20141212
  Serious: No
  Sender: FDA-Public Use
  Company Number: None

PATIENT
  Age: 52 Year
  Sex: Female

DRUGS (2)
  1. SOVALDI 400MG GILEAD SCIENCES [Suspect]
     Indication: CHRONIC HEPATITIS C
     Route: 048
     Dates: start: 20140122
  2. RIBAVIRIN 200MG [Suspect]
     Indication: CHRONIC HEPATITIS C
     Route: 048
     Dates: start: 20140122

REACTIONS (3)
  - Confusional state [None]
  - Blister [None]
  - Soliloquy [None]
